FAERS Safety Report 24151563 (Version 1)
Quarter: 2024Q3

REPORT INFORMATION
  Report Type: Report from Study
  Country: US (occurrence: None)
  Receive Date: 20240730
  Receipt Date: 20240730
  Transmission Date: 20241017
  Serious: Yes (Hospitalization)
  Sender: ASTRAZENECA
  Company Number: 2021A809943

PATIENT
  Age: 26791 Day
  Sex: Male

DRUGS (1)
  1. LYNPARZA [Suspect]
     Active Substance: OLAPARIB
     Indication: Prostate cancer
     Route: 048
     Dates: start: 202110, end: 20211106

REACTIONS (7)
  - Myocardial infarction [Unknown]
  - Vomiting [Unknown]
  - Abdominal discomfort [Unknown]
  - Pain [Unknown]
  - Somnolence [Unknown]
  - Nausea [Unknown]
  - Constipation [Unknown]

NARRATIVE: CASE EVENT DATE: 20211111
